FAERS Safety Report 5731672-7 (Version None)
Quarter: 2008Q2

REPORT INFORMATION
  Report Type: 
  Country: None (occurrence: None)
  Receive Date: 20080508
  Receipt Date: 20080428
  Transmission Date: 20081010
  Serious: Yes (Hospitalization)
  Sender: FDA-Public Use
  Company Number: PH-WYE-H03850808

PATIENT
  Age: 67 Year
  Sex: Male
  Weight: 72 kg

DRUGS (3)
  1. RAPAMUNE [Suspect]
     Indication: IMMUNOSUPPRESSANT DRUG THERAPY
     Route: 048
     Dates: start: 20080101
  2. PREDNISONE TAB [Suspect]
     Indication: IMMUNOSUPPRESSION
     Route: 048
     Dates: start: 20050101
  3. MYFORTIC [Suspect]
     Indication: IMMUNOSUPPRESSION
     Route: 048
     Dates: start: 20080101

REACTIONS (3)
  - BONE TUBERCULOSIS [None]
  - HEPATIC NEOPLASM [None]
  - SPLEEN DISORDER [None]
